FAERS Safety Report 7845056-9 (Version None)
Quarter: 2011Q4

REPORT INFORMATION
  Report Type: 
  Country: None (occurrence: None)
  Receive Date: 20111025
  Receipt Date: 20111019
  Transmission Date: 20120403
  Serious: Yes (Other)
  Sender: FDA-Public Use
  Company Number: JP-PFIZER INC-2011250983

PATIENT
  Age: 89 Year
  Sex: Male

DRUGS (1)
  1. VFEND [Suspect]
     Indication: SINUSITIS FUNGAL

REACTIONS (2)
  - PLEURAL EFFUSION [None]
  - GENERALISED OEDEMA [None]
